FAERS Safety Report 10164869 (Version 1)
Quarter: 2014Q2

REPORT INFORMATION
  Report Type: Spontaneous
  Country: US (occurrence: US)
  Receive Date: 20140510
  Receipt Date: 20140510
  Transmission Date: 20141212
  Serious: No
  Sender: FDA-Public Use
  Company Number: US-BRISTOL-MYERS SQUIBB COMPANY-20552097

PATIENT
  Age: 62 Year
  Sex: Female
  Weight: 79.36 kg

DRUGS (2)
  1. BYETTA [Suspect]
     Indication: TYPE 2 DIABETES MELLITUS
     Route: 058
     Dates: start: 2014
  2. JANUMET [Concomitant]

REACTIONS (4)
  - Expired product administered [Unknown]
  - Nausea [Unknown]
  - Asthenia [Unknown]
  - Dizziness [Unknown]
